FAERS Safety Report 19403233 (Version 1)
Quarter: 2021Q2

REPORT INFORMATION
  Report Type: Spontaneous
  Country: JP (occurrence: JP)
  Receive Date: 20210610
  Receipt Date: 20210610
  Transmission Date: 20210717
  Serious: Yes (Other)
  Sender: FDA-Public Use
  Company Number: JP-PFIZER INC-2021647942

PATIENT
  Sex: Female

DRUGS (2)
  1. LIPITOR [Suspect]
     Active Substance: ATORVASTATIN CALCIUM
     Dosage: UNK UNK, UNKNOWN FREQ.
     Route: 048
  2. LIPITOR [Suspect]
     Active Substance: ATORVASTATIN CALCIUM
     Dosage: UNK UNK, AS NEEDED
     Route: 048

REACTIONS (13)
  - Anaphylactic reaction [Unknown]
  - Prinzmetal angina [Unknown]
  - Blood pressure decreased [Unknown]
  - Anaemia [Unknown]
  - Urticaria [Recovered/Resolved]
  - Appendicitis [Unknown]
  - High density lipoprotein increased [Unknown]
  - Neoplasm malignant [Unknown]
  - Angina pectoris [Unknown]
  - Blood pressure increased [Recovered/Resolved]
  - Hypersensitivity [Unknown]
  - Intentional product misuse [Unknown]
  - Spleen disorder [Unknown]
